FAERS Safety Report 20854488 (Version 1)
Quarter: 2022Q2

REPORT INFORMATION
  Report Type: Report from Study
  Country: US (occurrence: None)
  Receive Date: 20220520
  Receipt Date: 20220520
  Transmission Date: 20220721
  Serious: Yes (Death)
  Sender: FDA-Public Use
  Company Number: 2022A192561

PATIENT
  Age: 25446 Day
  Sex: Male

DRUGS (2)
  1. LYNPARZA [Suspect]
     Active Substance: OLAPARIB
     Indication: Prostate cancer
     Dosage: TAKE 2 TABLETS (300MG) BY MOUTH IN THE MORNING AND 1 TABLET (150MG) BY MOUTH TWELVE HOURS LATER
     Route: 048
     Dates: start: 20210616
  2. LYNPARZA [Suspect]
     Active Substance: OLAPARIB
     Indication: Metastases to lymph nodes
     Dosage: TAKE 2 TABLETS (300MG) BY MOUTH IN THE MORNING AND 1 TABLET (150MG) BY MOUTH TWELVE HOURS LATER
     Route: 048
     Dates: start: 20210616

REACTIONS (1)
  - Death [Fatal]

NARRATIVE: CASE EVENT DATE: 20220516
